FAERS Safety Report 11003995 (Version 3)
Quarter: 2015Q3

REPORT INFORMATION
  Report Type: Spontaneous
  Country: US (occurrence: US)
  Receive Date: 20150409
  Receipt Date: 20150714
  Transmission Date: 20151125
  Serious: Yes (Death, Hospitalization, Other)
  Sender: FDA-Public Use
  Company Number: US-009507513-1504USA003777

PATIENT
  Sex: Female
  Weight: 84.35 kg

DRUGS (1)
  1. JANUVIA [Suspect]
     Active Substance: SITAGLIPTIN PHOSPHATE
     Indication: TYPE 2 DIABETES MELLITUS
     Dosage: 50 MG, QD
     Route: 048
     Dates: start: 20091016, end: 201302

REACTIONS (48)
  - Explorative laparotomy [Unknown]
  - Large intestine polyp [Unknown]
  - Arthritis [Unknown]
  - Hepatic cyst [Unknown]
  - Anal fistula [Unknown]
  - Rectal fistula repair [Unknown]
  - Gastrointestinal perforation [Unknown]
  - Basal cell carcinoma [Unknown]
  - Pancreatitis [Unknown]
  - Hyperlipidaemia [Unknown]
  - Diverticulum intestinal [Unknown]
  - Nausea [Unknown]
  - Diarrhoea [Unknown]
  - Oxygen saturation decreased [Unknown]
  - Peritonitis [Unknown]
  - Osteoporosis [Unknown]
  - Nephrolithiasis [Unknown]
  - Peripheral vascular disorder [Unknown]
  - Thyroid neoplasm [Unknown]
  - Pulmonary mass [Unknown]
  - Constipation [Unknown]
  - Hypotension [Unknown]
  - Cataract [Unknown]
  - Thrombocytopenia [Unknown]
  - Normochromic normocytic anaemia [Unknown]
  - Sensory loss [Unknown]
  - Metastases to abdominal wall [Unknown]
  - Omentectomy [Unknown]
  - Hypertension [Unknown]
  - Intestinal polypectomy [Unknown]
  - Hepatic infarction [Unknown]
  - Cachexia [Unknown]
  - Pancreatitis chronic [Not Recovered/Not Resolved]
  - Chronic kidney disease [Not Recovered/Not Resolved]
  - Lymphadenopathy [Unknown]
  - Back pain [Unknown]
  - Pancreatic carcinoma metastatic [Fatal]
  - Metastases to liver [Unknown]
  - Ascites [Unknown]
  - Postmenopausal haemorrhage [Unknown]
  - Wrong technique in product usage process [Unknown]
  - Vertigo [Unknown]
  - Dyspnoea [Unknown]
  - Skin neoplasm excision [Unknown]
  - Diabetes mellitus inadequate control [Unknown]
  - Renal cyst haemorrhage [Unknown]
  - Splenic vein occlusion [Unknown]
  - Arthroscopy [Unknown]

NARRATIVE: CASE EVENT DATE: 20091016
